FAERS Safety Report 6811467-3 (Version None)
Quarter: 2010Q2

REPORT INFORMATION
  Report Type: 
  Country: None (occurrence: None)
  Receive Date: 20100629
  Receipt Date: 20100629
  Transmission Date: 20101027
  Serious: Yes (Life-Threatening, Hospitalization)
  Sender: FDA-Public Use
  Company Number: None

PATIENT
  Age: 36 Year
  Sex: Female
  Weight: 55.3388 kg

DRUGS (2)
  1. YASMIN [Suspect]
     Indication: CONTRACEPTION
     Dosage: ONCE A DAY PO
     Route: 048
     Dates: start: 20070810, end: 20080311
  2. YAZ [Suspect]
     Indication: MENOPAUSAL SYMPTOMS
     Dosage: PO
     Route: 048

REACTIONS (9)
  - COUGH [None]
  - DYSPNOEA [None]
  - FALL [None]
  - FATIGUE [None]
  - HEADACHE [None]
  - LOSS OF CONSCIOUSNESS [None]
  - MALAISE [None]
  - NAUSEA [None]
  - PALLOR [None]
